FAERS Safety Report 4771949-5 (Version None)
Quarter: 2005Q3

REPORT INFORMATION
  Report Type: 
  Country: None (occurrence: None)
  Receive Date: 20050916
  Receipt Date: 20050815
  Transmission Date: 20060218
  Serious: Yes (Hospitalization)
  Sender: FDA-Public Use
  Company Number: US-NOVOPROD-246242

PATIENT
  Age: 73 Year
  Sex: Male
  Weight: 132 kg

DRUGS (8)
  1. NOVOLOG [Suspect]
     Indication: INSULIN-REQUIRING TYPE II DIABETES MELLITUS
     Dosage: 14 IU, TID
     Route: 058
     Dates: start: 20040601
  2. COUMADIN [Concomitant]
     Indication: ANTICOAGULANT THERAPY
  3. LASIX [Concomitant]
     Indication: FLUID RETENTION
  4. XALATAN [Concomitant]
     Indication: FLUID RETENTION
     Dates: start: 20050601, end: 20050804
  5. PREDNISONE [Concomitant]
     Indication: GOUT
  6. ENALAPRIL [Concomitant]
     Indication: HYPERTENSION
  7. TERAZOSIN HCL [Concomitant]
     Indication: HYPERTENSION
  8. METOPROLOL SUCCINATE [Concomitant]
     Indication: HYPERTENSION

REACTIONS (4)
  - BLOOD GLUCOSE DECREASED [None]
  - DEHYDRATION [None]
  - HYPOTENSION [None]
  - RENAL IMPAIRMENT [None]
